FAERS Safety Report 25817680 (Version 7)
Quarter: 2025Q4

REPORT INFORMATION
  Report Type: Spontaneous
  Country: US (occurrence: US)
  Receive Date: 20250918
  Receipt Date: 20251029
  Transmission Date: 20260117
  Serious: No
  Sender: PFIZER
  Company Number: US-PFIZER INC-202500183289

PATIENT
  Age: 4 Year
  Sex: Male
  Weight: 12.6 kg

DRUGS (2)
  1. GENOTROPIN [Suspect]
     Active Substance: SOMATROPIN
     Indication: Short stature
     Dosage: 0.6 MG, 1X/DAY
     Dates: start: 202507
  2. GENOTROPIN [Suspect]
     Active Substance: SOMATROPIN
     Indication: Small for dates baby
     Dosage: 0.5 MG, 1X/DAY
     Route: 058
     Dates: start: 202508

REACTIONS (6)
  - Injection site pain [Unknown]
  - Device delivery system issue [Unknown]
  - Device leakage [Unknown]
  - Needle issue [Unknown]
  - Device physical property issue [Unknown]
  - Device defective [Unknown]

NARRATIVE: CASE EVENT DATE: 20250101
